FAERS Safety Report 9591875 (Version 2)
Quarter: 2013Q4

REPORT INFORMATION
  Report Type: Spontaneous
  Country: US (occurrence: US)
  Receive Date: 20131004
  Receipt Date: 20131004
  Transmission Date: 20140711
  Serious: No
  Sender: FDA-Public Use
  Company Number: US-AMGEN-USASP2012082852

PATIENT
  Age: 58 Year
  Sex: Female
  Weight: 79.37 kg

DRUGS (5)
  1. ENBREL [Suspect]
     Indication: RHEUMATOID ARTHRITIS
     Dosage: 50 MG, QWK
     Route: 058
     Dates: start: 201209
  2. LYRICA [Concomitant]
     Dosage: 225 MG, UNK
  3. PLAQUENIL                          /00072602/ [Concomitant]
     Dosage: 200 MG, UNK
  4. ZONISAMIDE [Concomitant]
     Dosage: 25 MG, UNK
  5. METHOTREXATE [Concomitant]
     Dosage: 1 G, UNK

REACTIONS (2)
  - Weight increased [Unknown]
  - Sinusitis [Recovering/Resolving]
